FAERS Safety Report 12899701 (Version 2)
Quarter: 2017Q1

REPORT INFORMATION
  Report Type: Spontaneous
  Country: US (occurrence: US)
  Receive Date: 20161101
  Receipt Date: 20170202
  Transmission Date: 20170428
  Serious: Yes (Life-Threatening, Hospitalization, Other)
  Sender: FDA-Public Use
  Company Number: US-GLAXOSMITHKLINE-US2016GSK159670

PATIENT
  Age: 27 Year
  Sex: Female
  Weight: 95.24 kg

DRUGS (9)
  1. METFORMIN [Concomitant]
     Active Substance: METFORMIN HYDROCHLORIDE
  2. SYNJARDY [Concomitant]
     Active Substance: EMPAGLIFLOZIN\METFORMIN HYDROCHLORIDE
  3. ATORVASTATIN [Concomitant]
     Active Substance: ATORVASTATIN
  4. FAMOTIDINE. [Concomitant]
     Active Substance: FAMOTIDINE
  5. LIPITOR [Concomitant]
     Active Substance: ATORVASTATIN CALCIUM
  6. TANZEUM [Suspect]
     Active Substance: ALBIGLUTIDE
     Indication: TYPE 2 DIABETES MELLITUS
     Dosage: 30 MG, U
     Route: 042
     Dates: start: 20160323, end: 20161026
  7. HYDROXYZINE PAMOATE. [Concomitant]
     Active Substance: HYDROXYZINE PAMOATE
  8. DEXTROAMPHETAMINE. [Concomitant]
     Active Substance: DEXTROAMPHETAMINE
  9. TOPIRAMATE. [Concomitant]
     Active Substance: TOPIRAMATE

REACTIONS (8)
  - Goitre [Unknown]
  - Medication error [Unknown]
  - Papillary thyroid cancer [Not Recovered/Not Resolved]
  - Thyroid cancer metastatic [Unknown]
  - Thyroidectomy [Unknown]
  - Autoimmune thyroiditis [Unknown]
  - Oesophagitis [Unknown]
  - Thyroid function test abnormal [Unknown]

NARRATIVE: CASE EVENT DATE: 20160802
